FAERS Safety Report 8844295 (Version 1)
Quarter: 2012Q4

REPORT INFORMATION
  Report Type: 
  Country: US (occurrence: US)
  Receive Date: 20121017
  Receipt Date: 20121017
  Transmission Date: 20130627
  Serious: No
  Sender: FDA-Public Use
  Company Number: US-JNJFOC-20121003330

PATIENT
  Age: 41 Year
  Sex: Female
  Weight: 65.32 kg

DRUGS (1)
  1. DURAGESIC [Suspect]
     Indication: SPINAL CORD INJURY
     Route: 062
     Dates: start: 201111

REACTIONS (6)
  - Drug dose omission [Not Recovered/Not Resolved]
  - Weight fluctuation [Unknown]
  - Abasia [Not Recovered/Not Resolved]
  - Withdrawal syndrome [Not Recovered/Not Resolved]
  - Product quality issue [Unknown]
  - Product physical issue [Unknown]
